FAERS Safety Report 22974634 (Version 2)
Quarter: 2023Q4

REPORT INFORMATION
  Report Type: Spontaneous
  Country: US (occurrence: US)
  Receive Date: 20230923
  Receipt Date: 20231011
  Transmission Date: 20240109
  Serious: No
  Sender: FDA-Public Use
  Company Number: US-OPELLA-2023OHG008850

PATIENT

DRUGS (1)
  1. ICY HOT MEDICATED NO MESS APPLICATOR [Suspect]
     Active Substance: MENTHOL
     Dosage: DOSAGE STRENGTH: 11.68 G/73 ML
     Route: 065

REACTIONS (2)
  - Drug ineffective [Unknown]
  - No adverse event [Unknown]
